FAERS Safety Report 16829073 (Version 1)
Quarter: 2019Q3

REPORT INFORMATION
  Report Type: Report from Study
  Country: GB (occurrence: GB)
  Receive Date: 20190919
  Receipt Date: 20190919
  Transmission Date: 20191005
  Serious: Yes (Hospitalization)
  Sender: FDA-Public Use
  Company Number: PHHY2019GB216224

PATIENT
  Sex: Female

DRUGS (1)
  1. HYRIMOZ [Suspect]
     Active Substance: ADALIMUMAB-ADAZ
     Indication: RHEUMATOID ARTHRITIS
     Dosage: UNK UNK, Q2W, PREFILLED PEN
     Route: 065
     Dates: start: 20190411

REACTIONS (3)
  - Intestinal obstruction [Unknown]
  - Crohn^s disease [Unknown]
  - Pneumonia [Unknown]
